FAERS Safety Report 8848669 (Version 1)
Quarter: 2012Q4

REPORT INFORMATION
  Report Type: Spontaneous
  Country: DE (occurrence: None)
  Receive Date: 20121015
  Receipt Date: 20121015
  Transmission Date: 20130627
  Serious: Yes (Other)
  Sender: FDA-Public Use
  Company Number: DSA_60059_2012

PATIENT
  Age: 51 Year
  Sex: Female

DRUGS (1)
  1. METRONIDAZOLE [Suspect]
     Indication: PERIODONTITIS
     Dosage: 400 mg TID Oral
     Route: 048

REACTIONS (4)
  - Dizziness [None]
  - Cardiovascular insufficiency [None]
  - Nausea [None]
  - Vomiting [None]
